FAERS Safety Report 7353947-0 (Version None)
Quarter: 2011Q1

REPORT INFORMATION
  Report Type: 
  Country: None (occurrence: None)
  Receive Date: 20110315
  Receipt Date: 20110301
  Transmission Date: 20110831
  Serious: Yes (Other)
  Sender: FDA-Public Use
  Company Number: PHHY2011EC16828

PATIENT
  Age: 77 Year
  Sex: Female

DRUGS (4)
  1. DIOVAN HCT [Suspect]
     Indication: HYPERTENSION
     Dosage: 160 MG OF VALS AND 12.5 MG OF HYD, QD
     Route: 048
     Dates: start: 20051201, end: 20090101
  2. DIOVAN HCT [Suspect]
     Dosage: 160 MG OF VALS AND 25 MG OF HYD, QD
     Route: 048
     Dates: start: 20090101
  3. IBUPROFEN [Concomitant]
  4. SERTRALINE [Concomitant]
     Indication: DEPRESSION
     Dosage: 50 MG, QD

REACTIONS (8)
  - HEADACHE [None]
  - NECK PAIN [None]
  - DIZZINESS [None]
  - VOMITING [None]
  - INTERVERTEBRAL DISC PROTRUSION [None]
  - BURNING SENSATION [None]
  - NAUSEA [None]
  - HYPOAESTHESIA [None]
